FAERS Safety Report 5697470-8 (Version None)
Quarter: 2008Q2

REPORT INFORMATION
  Report Type: 
  Country: None (occurrence: None)
  Receive Date: 20080407
  Receipt Date: 20080326
  Transmission Date: 20081010
  Serious: Yes (Other)
  Sender: FDA-Public Use
  Company Number: PHHY2008JP03032

PATIENT
  Age: 25 Year
  Sex: Male

DRUGS (9)
  1. TEGRETOL [Suspect]
     Indication: EPILEPSY
     Dosage: 800 MG/DAY
     Route: 048
  2. DEPAKENE [Concomitant]
     Indication: EPILEPSY
     Dosage: 450 MG/DAY
     Route: 048
  3. ZONISAMIDE [Concomitant]
     Indication: EPILEPSY
     Dosage: 400 MG/DAY
     Route: 048
  4. HIRNAMIN [Concomitant]
     Indication: AGITATION
     Dosage: 200 MG/DAY
     Route: 048
  5. SERENACE [Concomitant]
     Indication: AGITATION
     Dosage: 3.5 MG/DAY
     Route: 048
  6. ARTANE [Concomitant]
     Indication: TREMOR
     Dosage: 2.5 MG/DAY
     Route: 048
  7. BIO THREE [Concomitant]
     Indication: DIARRHOEA
     Dosage: 1.0 MG/DAY
     Route: 048
  8. NITRAZEPAM [Concomitant]
     Indication: INSOMNIA
     Dosage: 10 MG/DAY
     Route: 048
  9. DRUG THERAPY NOS [Concomitant]
     Indication: INSOMNIA
     Dosage: 3 MG/DAY
     Route: 048

REACTIONS (3)
  - BODY HEIGHT DECREASED [None]
  - BONE DENSITY DECREASED [None]
  - LORDOSIS [None]
